FAERS Safety Report 6959806 (Version 4)
Quarter: 2012Q4

REPORT INFORMATION
  Report Type: 
  Country: DE (occurrence: DE)
  Receive Date: 20090403
  Receipt Date: 20120926
  Transmission Date: 20130627
  Serious: Yes (Hospitalization, Other)
  Sender: FDA-Public Use
  Company Number: DE-ROXANE LABORATORIES, INC.-2009-RO-00317RO

PATIENT
  Age: 3 Year
  Sex: Male
  Weight: 13 kg

DRUGS (9)
  1. CODEINE SULFATE [Suspect]
     Indication: ANTITUSSIVE THERAPY
  2. ACETAMINOPHEN [Suspect]
     Indication: COUGH
  3. ACETAMINOPHEN [Suspect]
     Indication: PYREXIA
  4. IBUPROFEN [Suspect]
     Indication: COUGH
  5. IBUPROFEN [Suspect]
     Indication: PYREXIA
  6. IVY EXTRACT [Suspect]
     Indication: COUGH
  7. IVY EXTRACT [Suspect]
     Indication: PYREXIA
  8. ANTIBIOTICS [Concomitant]
     Indication: PNEUMONIA ASPIRATION
  9. CATECHOLAMINES [Concomitant]
     Indication: HYPOTENSION

REACTIONS (11)
  - Toxicity to various agents [Recovered/Resolved]
  - Drug administration error [Recovered/Resolved]
  - Accidental overdose [Recovered/Resolved]
  - Vomiting [Recovered/Resolved]
  - Apnoea [Recovered/Resolved]
  - Coma [Recovered/Resolved]
  - Moraxella infection [Recovered/Resolved]
  - Metapneumovirus infection [Recovered/Resolved]
  - Pneumonia aspiration [Recovered/Resolved]
  - Hypotension [Recovered/Resolved]
  - Confusional state [Recovered/Resolved]
